FAERS Safety Report 5950574-4 (Version None)
Quarter: 2008Q4

REPORT INFORMATION
  Report Type: 
  Country: None (occurrence: None)
  Receive Date: 20081112
  Receipt Date: 20081029
  Transmission Date: 20090506
  Serious: Yes (Other)
  Sender: FDA-Public Use
  Company Number: US-ELI_LILLY_AND_COMPANY-US200810007069

PATIENT
  Sex: Female

DRUGS (3)
  1. FORTEO [Suspect]
     Dates: start: 20070101
  2. PRILOSEC [Concomitant]
  3. TOPROL-XL [Concomitant]

REACTIONS (1)
  - HAEMOGLOBIN DECREASED [None]
